FAERS Safety Report 5158495-4 (Version None)
Quarter: 2006Q4

REPORT INFORMATION
  Report Type: 
  Country: None (occurrence: None)
  Receive Date: 20061117
  Receipt Date: 20061109
  Transmission Date: 20070319
  Serious: Yes (Death, Life-Threatening)
  Sender: FDA-Public Use
  Company Number: HQWYE722810APR06

PATIENT
  Age: 69 Year
  Sex: Female

DRUGS (11)
  1. MYLOTARG [Suspect]
     Indication: ACUTE MYELOID LEUKAEMIA RECURRENT
     Dosage: A SINGLE 9 MG/M^2 DOSE
     Route: 041
     Dates: start: 20060405, end: 20060405
  2. MYLOTARG [Suspect]
     Indication: ACUTE MYELOID LEUKAEMIA RECURRENT
     Dosage: A SINGLE 9 MG/M^2 DOSE
     Route: 041
     Dates: start: 20060517, end: 20060517
  3. AMIKACIN SULFATE [Suspect]
     Dosage: 400 MG 1X PER 1 DAY ; 200 MG 1X PER 1 DAY
     Route: 041
     Dates: start: 20060330, end: 20060407
  4. AMIKACIN SULFATE [Suspect]
     Dosage: 400 MG 1X PER 1 DAY ; 200 MG 1X PER 1 DAY
     Route: 041
     Dates: start: 20060408, end: 20060421
  5. MEROPEN (MEROPENEM) [Suspect]
     Dosage: 1 G 1X PER 1 DAY; 2 G 1X PER 1 DAY
     Route: 041
     Dates: start: 20060404, end: 20060407
  6. MEROPEN (MEROPENEM) [Suspect]
     Dosage: 1 G 1X PER 1 DAY; 2 G 1X PER 1 DAY
     Route: 041
     Dates: start: 20060408, end: 20060421
  7. MODACIN (CEFTAZIDINE) [Concomitant]
  8. FRAGMIN [Concomitant]
  9. VFEND [Concomitant]
  10. FOY (GABEXATE MESILATE) [Concomitant]
  11. TARGOCID (TEICOPLATIN) [Concomitant]

REACTIONS (10)
  - BONE MARROW FAILURE [None]
  - CONDITION AGGRAVATED [None]
  - HYPOTENSION [None]
  - LIVER DISORDER [None]
  - PULMONARY HAEMORRHAGE [None]
  - RENAL FAILURE [None]
  - RHABDOMYOLYSIS [None]
  - SEPSIS [None]
  - TUMOUR LYSIS SYNDROME [None]
  - WHEEZING [None]
